FAERS Safety Report 7785275-3 (Version None)
Quarter: 2011Q3

REPORT INFORMATION
  Report Type: 
  Country: None (occurrence: None)
  Receive Date: 20110929
  Receipt Date: 20110919
  Transmission Date: 20111222
  Serious: Yes (Hospitalization)
  Sender: FDA-Public Use
  Company Number: US-JNJFOC-20100203805

PATIENT
  Sex: Female
  Weight: 8.29 kg

DRUGS (10)
  1. FOLIC ACID [Concomitant]
  2. TYLENOL-500 [Concomitant]
  3. MUPIROCIN [Concomitant]
  4. ELIDEL [Concomitant]
  5. MICONAZOLE [Concomitant]
  6. INFLIXIMAB [Suspect]
     Indication: CROHN'S DISEASE
     Route: 042
     Dates: start: 20090905, end: 20091112
  7. METHOTREXATE [Suspect]
     Indication: ILL-DEFINED DISORDER
  8. PREVACID [Concomitant]
  9. CLOTRIMAZOLE [Concomitant]
  10. ANTIBIOTICS [Concomitant]
     Indication: INFLAMMATORY BOWEL DISEASE

REACTIONS (1)
  - RESPIRATORY SYNCYTIAL VIRUS BRONCHIOLITIS [None]
